FAERS Safety Report 15690416 (Version 1)
Quarter: 2018Q4

REPORT INFORMATION
  Report Type: Spontaneous
  Country: DE (occurrence: DE)
  Receive Date: 20181205
  Receipt Date: 20181205
  Transmission Date: 20190205
  Serious: Yes (Other)
  Sender: FDA-Public Use
  Company Number: DE-BAYER-2018-219827

PATIENT
  Age: 25 Year
  Sex: Female

DRUGS (2)
  1. GADOPENTETATE DIMEGLUMINE. [Suspect]
     Active Substance: GADOPENTETATE DIMEGLUMINE
     Indication: NUCLEAR MAGNETIC RESONANCE IMAGING
     Dosage: UNK
     Dates: start: 2002
  2. GADOTERIDOL [Suspect]
     Active Substance: GADOTERIDOL

REACTIONS (3)
  - Nephrogenic systemic fibrosis [None]
  - Contrast media deposition [None]
  - Labelled drug-disease interaction medication error [None]
